FAERS Safety Report 15317055 (Version 5)
Quarter: 2018Q3

REPORT INFORMATION
  Report Type: Spontaneous
  Country: US (occurrence: US)
  Receive Date: 20180824
  Receipt Date: 20180918
  Transmission Date: 20181010
  Serious: Yes (Hospitalization, Other)
  Sender: FDA-Public Use
  Company Number: US-PFIZER INC-2018018743

PATIENT
  Age: 69 Year
  Sex: Male
  Weight: 85.71 kg

DRUGS (2)
  1. LYRICA [Suspect]
     Active Substance: PREGABALIN
     Indication: NEUROPATHY PERIPHERAL
     Dosage: 100 MG, 2X/DAY (ONE IN THE MORNING, ONE IN THE EVENING BEFORE BED)
     Route: 048
  2. AMLODIPINE [Concomitant]
     Active Substance: AMLODIPINE BESYLATE
     Indication: BLOOD PRESSURE ABNORMAL
     Dosage: 1 DF, DAILY (IN THE MORNING)
     Route: 048

REACTIONS (8)
  - Feeling abnormal [Unknown]
  - Sepsis [Unknown]
  - Anxiety [Unknown]
  - Anaemia [Unknown]
  - Withdrawal syndrome [Not Recovered/Not Resolved]
  - Insomnia [Unknown]
  - Coma [Unknown]
  - Acute kidney injury [Recovering/Resolving]

NARRATIVE: CASE EVENT DATE: 20180629
